FAERS Safety Report 19128884 (Version 1)
Quarter: 2021Q2

REPORT INFORMATION
  Report Type: Spontaneous
  Country: US (occurrence: US)
  Receive Date: 20210413
  Receipt Date: 20210413
  Transmission Date: 20210717
  Serious: No
  Sender: FDA-Public Use
  Company Number: US-ALLERGAN-2110384US

PATIENT
  Sex: Female

DRUGS (2)
  1. LATISSE [Suspect]
     Active Substance: BIMATOPROST
     Indication: GROWTH OF EYELASHES
     Dosage: UNK
  2. LATISSE [Suspect]
     Active Substance: BIMATOPROST
     Indication: HAIR GROWTH ABNORMAL

REACTIONS (8)
  - Transferrin saturation increased [Unknown]
  - Autoimmune thyroiditis [Not Recovered/Not Resolved]
  - Off label use [Unknown]
  - Iron binding capacity total increased [Unknown]
  - Inappropriate schedule of product administration [Unknown]
  - Madarosis [Not Recovered/Not Resolved]
  - Serum ferritin decreased [Unknown]
  - Achlorhydria [Not Recovered/Not Resolved]

NARRATIVE: CASE EVENT DATE: 202011
